FAERS Safety Report 19651097 (Version 1)
Quarter: 2021Q3

REPORT INFORMATION
  Report Type: Spontaneous
  Country: US (occurrence: US)
  Receive Date: 20210803
  Receipt Date: 20210803
  Transmission Date: 20211014
  Serious: Yes (Life-Threatening, Other)
  Sender: FDA-Public Use
  Company Number: None

PATIENT
  Age: 56 Year
  Sex: Male
  Weight: 67.5 kg

DRUGS (2)
  1. SULFAMETHOXAZOLE 800/TRIMETHOPRIM160 [Suspect]
     Active Substance: SULFAMETHOXAZOLE\TRIMETHOPRIM
     Indication: URINARY TRACT INFECTION
     Dosage: ?          QUANTITY:56 TABLET(S);?
     Route: 048
     Dates: start: 20210720, end: 20210731
  2. METROPROLOL TARTRATE [Concomitant]
     Active Substance: METOPROLOL TARTRATE

REACTIONS (5)
  - Urinary retention [None]
  - Decreased appetite [None]
  - Faeces soft [None]
  - Haematemesis [None]
  - Abdominal distension [None]

NARRATIVE: CASE EVENT DATE: 20210730
